FAERS Safety Report 9917522 (Version 1)
Quarter: 2014Q1

REPORT INFORMATION
  Report Type: Spontaneous
  Country: FR (occurrence: FR)
  Receive Date: 20140221
  Receipt Date: 20140221
  Transmission Date: 20141002
  Serious: Yes (Hospitalization)
  Sender: FDA-Public Use
  Company Number: FR-UCBSA-112715

PATIENT
  Age: 74 Year
  Sex: Female

DRUGS (10)
  1. KEPPRA [Suspect]
     Route: 048
  2. FLAGYL [Suspect]
     Route: 048
     Dates: start: 20131126, end: 20131206
  3. CEFTRIAXONE MYLAN [Suspect]
     Dosage: 1 G DAILY
     Route: 042
     Dates: start: 20131126, end: 20131208
  4. PREVISCAN [Suspect]
     Dosage: 20 MG, DAILY DOSE: 10 MG
     Route: 048
  5. PREVISCAN [Suspect]
     Dosage: 20 MG, DAILY DOSE: 10 MG
     Route: 048
     Dates: start: 20131209
  6. BACLOFENE [Suspect]
     Route: 048
  7. DAFALGAN [Concomitant]
     Dosage: 1 G, DAILY DOSE: 2G
     Dates: start: 20131126, end: 20131216
  8. VANCOMYCINE MYLAN [Concomitant]
     Dates: start: 20131127, end: 20131216
  9. LOVENOX [Concomitant]
     Dosage: 6000 IU ANTI-XA/0.6 ML
     Route: 058
     Dates: start: 20131130, end: 20131216
  10. OROKEN [Concomitant]
     Indication: URINARY TRACT INFECTION
     Dates: start: 20131118

REACTIONS (2)
  - Hepatitis acute [Recovering/Resolving]
  - Pyelonephritis [Unknown]
